FAERS Safety Report 13296420 (Version 1)
Quarter: 2017Q1

REPORT INFORMATION
  Report Type: Report from Study
  Country: FR (occurrence: FR)
  Receive Date: 20170305
  Receipt Date: 20170305
  Transmission Date: 20170428
  Serious: Yes (Other)
  Sender: FDA-Public Use
  Company Number: PHHO2016FR009723

PATIENT
  Age: 8 Year
  Sex: Female

DRUGS (7)
  1. ETOPOSIDE. [Suspect]
     Active Substance: ETOPOSIDE
     Indication: OSTEOSARCOMA
     Dosage: 75 MG/M2, UNK
     Route: 042
     Dates: start: 20130711, end: 20130716
  2. ZOPHREN [Suspect]
     Active Substance: ONDANSETRON
     Indication: OSTEOSARCOMA
     Dosage: 8MG/ML
     Route: 042
     Dates: start: 20130711, end: 20130716
  3. IFOSFAMIDE. [Suspect]
     Active Substance: IFOSFAMIDE
     Indication: OSTEOSARCOMA
     Dosage: 3000 MG/M2, UNK
     Route: 042
     Dates: start: 20130711, end: 20130715
  4. UROMITEXAN [Concomitant]
     Active Substance: MESNA
     Indication: PRODUCT USED FOR UNKNOWN INDICATION
     Dosage: 4500 MG/M2, UNK
     Route: 065
  5. VOGALENE [Suspect]
     Active Substance: METOPIMAZINE
     Indication: OSTEOSARCOMA
     Dosage: 10 MG/ML, UNK
     Route: 042
     Dates: start: 20130711, end: 20130716
  6. METHOTREXATE. [Concomitant]
     Active Substance: METHOTREXATE
     Indication: PRODUCT USED FOR UNKNOWN INDICATION
     Dosage: UNK
     Route: 065
     Dates: start: 20130617
  7. ZOLEDRONATE [Suspect]
     Active Substance: ZOLEDRONIC ACID
     Indication: OSTEOSARCOMA
     Dosage: UNK
     Route: 042
     Dates: start: 20130622

REACTIONS (3)
  - Eyelid ptosis [Recovered/Resolved]
  - Dyskinesia [Recovered/Resolved]
  - Speech disorder [Recovered/Resolved]

NARRATIVE: CASE EVENT DATE: 20130712
